FAERS Safety Report 9115946 (Version 1)
Quarter: 2013Q1

REPORT INFORMATION
  Report Type: Report from Study
  Country: AT (occurrence: AT)
  Receive Date: 20130225
  Receipt Date: 20130225
  Transmission Date: 20140127
  Serious: Yes (Hospitalization, Other)
  Sender: FDA-Public Use
  Company Number: AT-BRISTOL-MYERS SQUIBB COMPANY-16449407

PATIENT
  Age: 75 Year
  Sex: Male

DRUGS (14)
  1. IPILIMUMAB [Suspect]
     Indication: PROSTATE CANCER
     Dosage: 790 MG TOTAL DOSE
     Route: 042
     Dates: start: 20110921, end: 20120302
  2. ESCITALOPRAM OXALATE [Concomitant]
     Route: 048
     Dates: start: 2008
  3. LEVOTHYROXIN [Concomitant]
     Route: 048
     Dates: start: 1995
  4. EBIXA [Concomitant]
     Route: 048
     Dates: start: 2008
  5. PREDNISOLONE [Concomitant]
     Route: 048
     Dates: start: 20110215
  6. ZOLEDRONIC ACID [Concomitant]
     Route: 042
     Dates: start: 2009
  7. LEUPRORELIN [Concomitant]
     Route: 058
     Dates: start: 200811
  8. PANTOPRAZOLE [Concomitant]
     Route: 048
     Dates: start: 20111103, end: 20120305
  9. TRAMADOL [Concomitant]
     Route: 048
     Dates: start: 20111105
  10. DARBEPOETIN ALFA [Concomitant]
     Route: 058
     Dates: start: 20111110
  11. METAMIZOL [Concomitant]
     Route: 048
     Dates: start: 20111207, end: 20120305
  12. GINKGO BILOBA [Concomitant]
     Route: 048
     Dates: start: 2008
  13. DICLOFENAC [Concomitant]
     Route: 048
     Dates: start: 201103
  14. MAGNESIUM VERLA [Concomitant]
     Dates: start: 20120312

REACTIONS (2)
  - Intestinal haemorrhage [Recovered/Resolved]
  - General physical health deterioration [Recovered/Resolved with Sequelae]
